FAERS Safety Report 9415072 (Version 2)
Quarter: 2013Q3

REPORT INFORMATION
  Report Type: Spontaneous
  Country: CN (occurrence: CN)
  Receive Date: 20130723
  Receipt Date: 20130925
  Transmission Date: 20140515
  Serious: Yes (Other)
  Sender: FDA-Public Use
  Company Number: PHHY2013CN077183

PATIENT
  Age: 55 Year
  Sex: Male

DRUGS (1)
  1. ZOLEDRONATE [Suspect]
     Indication: METASTASES TO SPINE
     Dosage: 4 MG, EACH TIME ONCE A MONTH

REACTIONS (8)
  - Osteonecrosis of jaw [Unknown]
  - Bone density increased [Unknown]
  - Wound [Unknown]
  - Bone pain [Unknown]
  - Tooth loss [Unknown]
  - Dental caries [Unknown]
  - Tooth discolouration [Unknown]
  - Swelling [Unknown]
